FAERS Safety Report 7421240-3 (Version None)
Quarter: 2011Q2

REPORT INFORMATION
  Report Type: 
  Country: None (occurrence: None)
  Receive Date: 20110407
  Receipt Date: 20110121
  Transmission Date: 20111010
  Serious: No
  Sender: FDA-Public Use
  Company Number: USA/USA/11/0017210

PATIENT
  Age: 66 Year
  Sex: Female

DRUGS (2)
  1. PRAVASTATIN [Concomitant]
  2. VENLAFAXINE HCL [Suspect]
     Indication: DEPRESSION
     Dosage: 75 MG, 1 IN 1 D, ORAL
     Route: 048
     Dates: start: 20110101, end: 20110119

REACTIONS (2)
  - INFLUENZA LIKE ILLNESS [None]
  - HEAD DISCOMFORT [None]
